FAERS Safety Report 12246293 (Version 1)
Quarter: 2016Q2

REPORT INFORMATION
  Report Type: Spontaneous
  Country: FR (occurrence: FR)
  Receive Date: 20160407
  Receipt Date: 20160407
  Transmission Date: 20160815
  Serious: Yes (Disabling)
  Sender: FDA-Public Use
  Company Number: ALCN2016FR001124

PATIENT
  Age: 67 Year
  Sex: Female
  Weight: 65 kg

DRUGS (2)
  1. CHIBRO CADRON [Concomitant]
     Active Substance: DEXAMETHASONE SODIUM PHOSPHATE\NEOMYCIN SULFATE
     Indication: POSTOPERATIVE CARE
     Dosage: 1 GTT, QID
     Route: 065
     Dates: start: 20160108, end: 20160120
  2. AZARGA [Suspect]
     Active Substance: BRINZOLAMIDE\TIMOLOL MALEATE
     Indication: POSTOPERATIVE CARE
     Dosage: 1 GTT, BID
     Route: 047
     Dates: start: 20160108, end: 20160120

REACTIONS (2)
  - Dyspnoea [Recovered/Resolved]
  - Raynaud^s phenomenon [Recovered/Resolved]

NARRATIVE: CASE EVENT DATE: 20160110
